FAERS Safety Report 5406709-5 (Version None)
Quarter: 2007Q3

REPORT INFORMATION
  Report Type: 
  Country: None (occurrence: None)
  Receive Date: 20070803
  Receipt Date: 20070803
  Transmission Date: 20080115
  Serious: Yes (Other)
  Sender: FDA-Public Use
  Company Number: None

PATIENT
  Sex: Female
  Weight: 92.0802 kg

DRUGS (1)
  1. EFFEXOR XR [Suspect]
     Dates: start: 20070206

REACTIONS (11)
  - AGITATION [None]
  - AMNESIA [None]
  - ANHEDONIA [None]
  - CONFUSIONAL STATE [None]
  - CRYING [None]
  - DECREASED INTEREST [None]
  - FATIGUE [None]
  - FEELING ABNORMAL [None]
  - IRRITABILITY [None]
  - MOOD SWINGS [None]
  - SUICIDAL IDEATION [None]
